FAERS Safety Report 9543295 (Version 4)
Quarter: 2014Q4

REPORT INFORMATION
  Report Type: Report from Study
  Country: IL (occurrence: IL)
  Receive Date: 20130923
  Receipt Date: 20141204
  Transmission Date: 20150529
  Serious: Yes (Other)
  Sender: FDA-Public Use
  Company Number: PHHY2012IL075363

PATIENT
  Age: 70 Year
  Sex: Female

DRUGS (3)
  1. INTERFERON NOS [Concomitant]
     Active Substance: INTERFERON
     Indication: PRODUCT USED FOR UNKNOWN INDICATION
     Route: 065
  2. SANDOSTATIN LAR DEPOT [Suspect]
     Active Substance: OCTREOTIDE ACETATE
     Indication: CARCINOID TUMOUR
     Dosage: 40 MG, EVERY 28 DAYS
     Route: 030
     Dates: start: 20130410, end: 20130410
  3. SANDOSTATIN LAR DEPOT [Suspect]
     Active Substance: OCTREOTIDE ACETATE
     Indication: PANCREATIC NEUROENDOCRINE TUMOUR
     Dosage: 40 MG, EVERY 28 DAYS
     Route: 030
     Dates: start: 20100318

REACTIONS (5)
  - Malignant neoplasm progression [Not Recovered/Not Resolved]
  - Movement disorder [Unknown]
  - General physical health deterioration [Unknown]
  - Pain [Unknown]
  - Back pain [Unknown]
